FAERS Safety Report 9118282 (Version 1)
Quarter: 2013Q1

REPORT INFORMATION
  Report Type: Spontaneous
  Country: US (occurrence: None)
  Receive Date: 20130221
  Receipt Date: 20130221
  Transmission Date: 20140127
  Serious: Yes (Other)
  Sender: FDA-Public Use
  Company Number: None

PATIENT
  Age: 64 Year
  Sex: Female
  Weight: 52.16 kg

DRUGS (2)
  1. BENTYL [Suspect]
     Indication: ABDOMINAL PAIN
     Dosage: 1  ORAL
     Route: 048
     Dates: start: 201301
  2. FLU SHOT [Suspect]
     Dosage: 1   SHOT
     Route: 030
     Dates: start: 201210

REACTIONS (7)
  - Lip swelling [None]
  - Meniere^s disease [None]
  - Weight decreased [None]
  - Dizziness [None]
  - Headache [None]
  - Vertigo [None]
  - Frequent bowel movements [None]
